FAERS Safety Report 4761471-4 (Version None)
Quarter: 2005Q3

REPORT INFORMATION
  Report Type: 
  Country: None (occurrence: None)
  Receive Date: 20050830
  Receipt Date: 20050621
  Transmission Date: 20060218
  Serious: Yes (Hospitalization, Other)
  Sender: FDA-Public Use
  Company Number: US_0411107605

PATIENT
  Age: 52 Year
  Sex: Female
  Weight: 102 kg

DRUGS (30)
  1. ZYPREXA [Suspect]
     Indication: BIPOLAR DISORDER
     Dosage: 10 MG AT BEDTIME
     Dates: start: 20030424, end: 20040805
  2. SYMBYAX [Suspect]
     Dates: start: 20030507, end: 20040512
  3. PROZAC [Concomitant]
  4. BUPROPION [Concomitant]
  5. GLIPIZIDE [Concomitant]
  6. METFORMIN [Concomitant]
  7. ALLEGRA-D [Concomitant]
  8. PREMARIN [Concomitant]
  9. NEXIUM [Concomitant]
  10. LIPITOR [Concomitant]
  11. TOLTERODINE TARTRATE [Concomitant]
  12. VIOXX [Concomitant]
  13. MULTI-VITAMIN [Concomitant]
  14. ASPIRIN [Concomitant]
  15. ZOCOR (SIMVASTATIN RATIOPHARM) [Concomitant]
  16. PREVACID [Concomitant]
  17. CYCLOBENZAPRINE HCL [Concomitant]
  18. OSCAL (CALCIUM CARBONATE) [Concomitant]
  19. ASCORBIC ACID [Concomitant]
  20. CLARITIN [Concomitant]
  21. SUDAFED 12 HOUR [Concomitant]
  22. ANCEF [Concomitant]
  23. PROMETHAZINE [Concomitant]
  24. CALCIUM GLUCONATE [Concomitant]
  25. HYDROCODONE [Concomitant]
  26. FLUTICASONE [Concomitant]
  27. TRAZADONE (TRAZODONE) [Concomitant]
  28. ACETAMINOPHEN W/HYDROCODONE [Concomitant]
  29. PSEUDOEPHEDRINE HCL [Concomitant]
  30. WELLBUTRIN SR [Concomitant]

REACTIONS (11)
  - BLOOD CHOLESTEROL ABNORMAL [None]
  - BLOOD TRIGLYCERIDES INCREASED [None]
  - CARDIAC FAILURE CONGESTIVE [None]
  - CARDIOMEGALY [None]
  - DIABETES MELLITUS NON-INSULIN-DEPENDENT [None]
  - GLYCOSURIA [None]
  - HAEMATURIA [None]
  - PERICARDIAL EFFUSION [None]
  - PNEUMONIA [None]
  - RENAL FAILURE [None]
  - VENTRICULAR HYPERTROPHY [None]
